FAERS Safety Report 8189521-6 (Version None)
Quarter: 2012Q1

REPORT INFORMATION
  Report Type: 
  Country: None (occurrence: None)
  Receive Date: 20120307
  Receipt Date: 20120224
  Transmission Date: 20120608
  Serious: Yes (Other)
  Sender: FDA-Public Use
  Company Number: US-SANOFI-AVENTIS-2012SA012797

PATIENT
  Sex: Female

DRUGS (3)
  1. APIDRA [Suspect]
     Dosage: 40 -50 UNITS WITH MEALS
     Route: 058
     Dates: start: 20100101
  2. SOLOSTAR [Suspect]
     Dates: start: 20100101
  3. INSULIN DETEMIR [Concomitant]

REACTIONS (2)
  - BLOOD GLUCOSE INCREASED [None]
  - RENAL FAILURE [None]
